FAERS Safety Report 23819485 (Version 1)
Quarter: 2024Q2

REPORT INFORMATION
  Report Type: Spontaneous
  Country: US (occurrence: US)
  Receive Date: 20240506
  Receipt Date: 20240506
  Transmission Date: 20240715
  Serious: No
  Sender: FDA-Public Use
  Company Number: US-AMNEAL PHARMACEUTICALS-2024-AMRX-01303

PATIENT
  Sex: Female

DRUGS (1)
  1. ALYMSYS [Suspect]
     Active Substance: BEVACIZUMAB-MALY
     Indication: Product used for unknown indication
     Dosage: 400 MG/16 ML SDV (ADMINISTER 15 MG/KG (919.5 MG) EVERY 21 DAYS FOR 12 CYCLES)
     Route: 042

REACTIONS (1)
  - Wound [Not Recovered/Not Resolved]
